FAERS Safety Report 4745405-4 (Version None)
Quarter: 2005Q3

REPORT INFORMATION
  Report Type: 
  Country: None (occurrence: None)
  Receive Date: 20050815
  Receipt Date: 20050801
  Transmission Date: 20060218
  Serious: Yes (Other)
  Sender: FDA-Public Use
  Company Number: GXBR2005US01260

PATIENT
  Age: 47 Year
  Sex: Male
  Weight: 86.2 kg

DRUGS (3)
  1. RIBAVIRIN [Suspect]
     Indication: HEPATITIS C
     Dosage: 400 MG, BID, ORAL
     Route: 048
     Dates: start: 20050401
  2. PEG-INTRON [Suspect]
     Indication: HEPATITIS C
     Dosage: 120 UG, QW
     Dates: start: 20050401
  3. EFFEXOR (VENLAFAINE HYDROCHLORIDE) [Concomitant]

REACTIONS (7)
  - ABDOMINAL PAIN [None]
  - CONTUSION [None]
  - DEHYDRATION [None]
  - DIARRHOEA [None]
  - RETCHING [None]
  - VOMITING [None]
  - WEIGHT DECREASED [None]
